FAERS Safety Report 7660753-6 (Version None)
Quarter: 2011Q3

REPORT INFORMATION
  Report Type: 
  Country: None (occurrence: None)
  Receive Date: 20110805
  Receipt Date: 20101105
  Transmission Date: 20111222
  Serious: No
  Sender: FDA-Public Use
  Company Number: US-ABBOTT-10P-163-0683669-00

PATIENT
  Sex: Male
  Weight: 117.13 kg

DRUGS (1)
  1. NIASPAN [Suspect]
     Indication: PRODUCT USED FOR UNKNOWN INDICATION
     Dosage: DAILY AT BEDTIME
     Dates: start: 20101103

REACTIONS (3)
  - PRURITUS [None]
  - MIDDLE INSOMNIA [None]
  - ERYTHEMA [None]
